FAERS Safety Report 14611553 (Version 1)
Quarter: 2018Q1

REPORT INFORMATION
  Report Type: Spontaneous
  Country: GB (occurrence: GB)
  Receive Date: 20180308
  Receipt Date: 20180308
  Transmission Date: 20180509
  Serious: Yes (Life-Threatening, Hospitalization, Other)
  Sender: FDA-Public Use
  Company Number: GB-LUPIN (EUROPE) LIMITED-2018-01693

PATIENT
  Sex: Female

DRUGS (2)
  1. IRBESARTAN 300 MG FILM-COATED TABLETS [Suspect]
     Active Substance: IRBESARTAN
     Indication: HYPERTENSION
     Dosage: UNK
     Route: 065
     Dates: start: 201608
  2. IRBESARTAN 300 MG FILM-COATED TABLETS [Suspect]
     Active Substance: IRBESARTAN
     Dosage: 300 MG, UNK
     Route: 065

REACTIONS (2)
  - Epistaxis [Recovered/Resolved]
  - Apparent life threatening event [Unknown]
